FAERS Safety Report 14261677 (Version 1)
Quarter: 2017Q4

REPORT INFORMATION
  Report Type: Spontaneous
  Country: US (occurrence: US)
  Receive Date: 20171208
  Receipt Date: 20171208
  Transmission Date: 20180321
  Serious: No
  Sender: FDA-Public Use
  Company Number: None

PATIENT
  Age: 52 Year
  Sex: Female
  Weight: 58.5 kg

DRUGS (3)
  1. CLARITIN [Concomitant]
     Active Substance: LORATADINE
  2. VITAMIN C [Concomitant]
     Active Substance: ASCORBIC ACID
  3. XIIDRA [Suspect]
     Active Substance: LIFITEGRAST
     Indication: DRY EYE
     Dosage: ?          QUANTITY:1 DROP(S);?
     Route: 047
     Dates: start: 20171129, end: 20171206

REACTIONS (3)
  - Odynophagia [None]
  - Musculoskeletal pain [None]
  - Nervousness [None]

NARRATIVE: CASE EVENT DATE: 20171206
